FAERS Safety Report 15594748 (Version 1)
Quarter: 2018Q4

REPORT INFORMATION
  Report Type: Spontaneous
  Country: AU (occurrence: AU)
  Receive Date: 20181107
  Receipt Date: 20181107
  Transmission Date: 20190205
  Serious: Yes (Other)
  Sender: FDA-Public Use
  Company Number: AU-OTSUKA AUSTRALIA PHARMACEUTICALS PTY LTD-2018_035200

PATIENT
  Age: 23 Year
  Sex: Male

DRUGS (13)
  1. OLANZAPINE. [Concomitant]
     Active Substance: OLANZAPINE
     Indication: PRODUCT USED FOR UNKNOWN INDICATION
     Dosage: 10 MG, UNK (IN MORNING)
     Route: 048
  2. METFORMIN [Concomitant]
     Active Substance: METFORMIN HYDROCHLORIDE
     Indication: PRODUCT USED FOR UNKNOWN INDICATION
     Dosage: 500 MG, BID
     Route: 048
  3. ATENOLOL. [Concomitant]
     Active Substance: ATENOLOL
     Indication: BLOOD PRESSURE MEASUREMENT
     Dosage: 50 MG, BID
     Route: 048
  4. ATORVASTATIN [Concomitant]
     Active Substance: ATORVASTATIN
     Indication: PRODUCT USED FOR UNKNOWN INDICATION
     Dosage: 40 MG, QD (AT NIGHT)
     Route: 048
  5. ZIPRASIDONE. [Concomitant]
     Active Substance: ZIPRASIDONE
     Indication: PRODUCT USED FOR UNKNOWN INDICATION
     Dosage: 10 MG, BID
     Route: 065
  6. ZIPRASIDONE. [Concomitant]
     Active Substance: ZIPRASIDONE
     Dosage: 20 MG, BID
     Route: 065
  7. CLOZAPINE. [Suspect]
     Active Substance: CLOZAPINE
     Dosage: UNK
     Route: 065
  8. ATENOLOL. [Concomitant]
     Active Substance: ATENOLOL
     Dosage: 75 MG, QD (IN MORNING)
     Route: 048
  9. ZUCLOPENTHIXOL [Concomitant]
     Active Substance: ZUCLOPENTHIXOL
     Indication: PRODUCT USED FOR UNKNOWN INDICATION
     Dosage: 400 MG, UNK (FORTNIGHTLY)
     Route: 065
  10. ARIPIPRAZOLE. [Suspect]
     Active Substance: ARIPIPRAZOLE
     Indication: SCHIZOPHRENIA
     Dosage: UNK
     Route: 065
  11. OLANZAPINE. [Concomitant]
     Active Substance: OLANZAPINE
     Dosage: 20 MG, UNK (AT NIGHT)
     Route: 065
  12. ESCITALOPRAM [Concomitant]
     Active Substance: ESCITALOPRAM OXALATE
     Indication: PRODUCT USED FOR UNKNOWN INDICATION
     Dosage: 20 MG, QD (IN MORNING)
     Route: 048
  13. CLOZAPINE. [Suspect]
     Active Substance: CLOZAPINE
     Indication: PRODUCT USED FOR UNKNOWN INDICATION
     Dosage: UNK
     Route: 065
     Dates: start: 20110113, end: 20110130

REACTIONS (26)
  - Blood triglycerides increased [Unknown]
  - Blood creatinine increased [Unknown]
  - Intrusive thoughts [Unknown]
  - Confusional state [Unknown]
  - Blood bilirubin increased [Unknown]
  - Blood cholesterol increased [Unknown]
  - Lymphocyte count increased [Unknown]
  - Persecutory delusion [Unknown]
  - Agitation [Unknown]
  - Troponin increased [Unknown]
  - Blood potassium increased [Unknown]
  - Blood albumin increased [Unknown]
  - Low density lipoprotein increased [Unknown]
  - Hypothermia [Unknown]
  - Hallucination, auditory [Unknown]
  - Anxiety [Unknown]
  - Tachycardia [Unknown]
  - Myocarditis [Unknown]
  - Urine abnormality [Unknown]
  - Autonomic nervous system imbalance [Unknown]
  - Blood thyroid stimulating hormone increased [Unknown]
  - Leukocytosis [Unknown]
  - Influenza like illness [Unknown]
  - Irritability [Unknown]
  - Red cell distribution width increased [Unknown]
  - Headache [Unknown]
